FAERS Safety Report 14753948 (Version 2)
Quarter: 2018Q2

REPORT INFORMATION
  Report Type: Report from Study
  Country: US (occurrence: US)
  Receive Date: 20180412
  Receipt Date: 20180604
  Transmission Date: 20180711
  Serious: Yes (Other)
  Sender: FDA-Public Use
  Company Number: US-TEVA-2018-US-879612

PATIENT

DRUGS (3)
  1. CYCLOPHOSPHAMIDE. [Interacting]
     Active Substance: CYCLOPHOSPHAMIDE
     Indication: ACUTE MYELOID LEUKAEMIA
     Dosage: 60 MG/KG FOR 2 DAYS
     Route: 041
  2. RECOMBINANT INTERLEUKIN-15 [Interacting]
     Active Substance: INTERLEUKIN 15, RECOMBINANT NON-GLYCOSYLATED
     Indication: ACUTE MYELOID LEUKAEMIA
     Dosage: RECEIVED CD3 AND CD19-DEPLETED HAPLO-NK CELLS INCUBATED OVERNIGHT WITH RECOMBINANT INTERLEUKIN-15...
     Route: 050
  3. FLUDARABINE [Suspect]
     Active Substance: FLUDARABINE PHOSPHATE
     Indication: ACUTE MYELOID LEUKAEMIA
     Dosage: 25 MG/M2 FOR 5 DAYS
     Route: 041

REACTIONS (4)
  - Drug interaction [Recovered/Resolved]
  - Cytokine release syndrome [Recovered/Resolved]
  - Encephalopathy [Recovered/Resolved]
  - Hypoxia [Recovered/Resolved]
